FAERS Safety Report 8778798 (Version 3)
Quarter: 2012Q4

REPORT INFORMATION
  Report Type: 
  Country: GR (occurrence: GR)
  Receive Date: 20120912
  Receipt Date: 20120930
  Transmission Date: 20130627
  Serious: Yes (Other)
  Sender: FDA-Public Use
  Company Number: PHHY2012GR068827

PATIENT
  Age: 70 Year
  Sex: Female

DRUGS (1)
  1. EXELON PATCH [Suspect]
     Indication: DEMENTIA
     Dosage: 9.5 mg, daily
     Route: 062

REACTIONS (2)
  - Drug administration error [Unknown]
  - Product adhesion issue [Unknown]
